FAERS Safety Report 10555017 (Version 2)
Quarter: 2014Q4

REPORT INFORMATION
  Report Type: Spontaneous
  Country: JP (occurrence: JP)
  Receive Date: 20141030
  Receipt Date: 20141030
  Transmission Date: 20150529
  Serious: Yes (Other)
  Sender: FDA-Public Use
  Company Number: PHHY2012JP136016

PATIENT
  Sex: Female

DRUGS (6)
  1. TASIGNA [Suspect]
     Active Substance: NILOTINIB
     Dosage: 600 MG, QD
     Route: 048
     Dates: start: 201204
  2. TASIGNA [Suspect]
     Active Substance: NILOTINIB
     Dosage: 200 MG,
     Route: 048
     Dates: start: 201206
  3. TASIGNA [Suspect]
     Active Substance: NILOTINIB
     Dosage: 400 MG,
     Route: 048
     Dates: start: 201208
  4. OMEPRAL [Suspect]
     Active Substance: OMEPRAZOLE
     Indication: PRODUCT USED FOR UNKNOWN INDICATION
     Route: 065
     Dates: start: 20120228, end: 20120318
  5. TASIGNA [Suspect]
     Active Substance: NILOTINIB
     Indication: CHRONIC MYELOID LEUKAEMIA
     Dosage: 600 MG, QD
     Route: 048
     Dates: start: 20120228
  6. TASIGNA [Suspect]
     Active Substance: NILOTINIB
     Dosage: 400 MG,
     Route: 048
     Dates: start: 201205

REACTIONS (9)
  - Neutropenia [Recovered/Resolved]
  - Aspartate aminotransferase increased [Recovering/Resolving]
  - Nausea [Recovering/Resolving]
  - Haematotoxicity [Recovering/Resolving]
  - Alanine aminotransferase increased [Recovered/Resolved]
  - Seborrhoeic dermatitis [Recovering/Resolving]
  - Cell marker increased [Unknown]
  - Platelet count decreased [Recovering/Resolving]
  - Blood bilirubin increased [Recovering/Resolving]

NARRATIVE: CASE EVENT DATE: 201202
